FAERS Safety Report 24810539 (Version 3)
Quarter: 2025Q2

REPORT INFORMATION
  Report Type: Report from Study
  Country: CN (occurrence: CN)
  Receive Date: 20250106
  Receipt Date: 20250613
  Transmission Date: 20250716
  Serious: Yes (Other)
  Sender: PFIZER
  Company Number: CN-TAKEDA-2023TUS022753

PATIENT
  Age: 28 Year
  Sex: Female
  Weight: 49 kg

DRUGS (18)
  1. BRENTUXIMAB VEDOTIN [Suspect]
     Active Substance: BRENTUXIMAB VEDOTIN
     Indication: Hodgkin^s disease nodular sclerosis
     Route: 041
     Dates: start: 20230301
  2. BRENTUXIMAB VEDOTIN [Suspect]
     Active Substance: BRENTUXIMAB VEDOTIN
     Indication: Hodgkin^s disease
  3. EPIRUBICIN HYDROCHLORIDE [Suspect]
     Active Substance: EPIRUBICIN HYDROCHLORIDE
     Indication: Hodgkin^s disease
     Dosage: 51.8 MILLIGRAM, QD
     Route: 042
     Dates: start: 20230320, end: 20230320
  4. DACARBAZINE [Suspect]
     Active Substance: DACARBAZINE
     Indication: Hodgkin^s disease
     Dosage: 555 MILLIGRAM, QD
     Route: 042
     Dates: start: 20230320, end: 20230320
  5. VINDESINE [Suspect]
     Active Substance: VINDESINE
     Indication: Hodgkin^s disease
     Dosage: 4 MILLIGRAM, QD
     Route: 042
     Dates: start: 20230320, end: 20230320
  6. NIMESULIDE [Suspect]
     Active Substance: NIMESULIDE
     Route: 065
  7. ENTECAVIR [Concomitant]
     Active Substance: ENTECAVIR
     Indication: Chronic hepatitis B
     Dosage: 0.5 MILLIGRAM, QD
     Route: 048
     Dates: start: 20230228
  8. OMEPRAZOLE [Concomitant]
     Active Substance: OMEPRAZOLE
     Indication: Gastrointestinal disorder prophylaxis
     Dosage: 20 MILLIGRAM, QD
     Route: 048
     Dates: start: 20230301
  9. LEUCOGEN [Concomitant]
     Active Substance: LEUCOGEN
     Indication: White blood cell count increased
     Dosage: 20 MILLIGRAM, QD
     Route: 048
     Dates: start: 20230301
  10. CEFACLOR [Concomitant]
     Active Substance: CEFACLOR
     Indication: Infection prophylaxis
     Dosage: 375 MILLIGRAM, QD
     Route: 048
     Dates: start: 20230301
  11. SULFAMETHOXAZOLE [Concomitant]
     Active Substance: SULFAMETHOXAZOLE
     Indication: Antifungal prophylaxis
     Dosage: UNK UNK, QD
     Route: 048
     Dates: start: 20230301
  12. ACYCLOVIR [Concomitant]
     Active Substance: ACYCLOVIR
     Indication: Antiviral prophylaxis
     Dosage: UNK UNK, BID
     Route: 048
     Dates: start: 20230301
  13. DEXAMETHASONE [Concomitant]
     Active Substance: DEXAMETHASONE
     Indication: Prophylaxis
     Dosage: 5 MILLIGRAM, QD
     Route: 042
     Dates: start: 20230406, end: 20230406
  14. RUO SHAN [Concomitant]
     Indication: Antiemetic supportive care
     Dosage: 0.5 MILLIGRAM, QD
     Route: 048
     Dates: start: 20230301
  15. FEBUXOSTAT [Concomitant]
     Active Substance: FEBUXOSTAT
     Dosage: 40 MILLIGRAM, QD
     Route: 048
  16. GRANISETRON HYDROCHLORIDE [Concomitant]
     Active Substance: GRANISETRON HYDROCHLORIDE
     Dosage: UNK UNK, QD
     Route: 061
  17. ONDANSETRON HYDROCHLORIDE [Concomitant]
     Active Substance: ONDANSETRON HYDROCHLORIDE
     Dosage: 8 MILLIGRAM, QD
     Route: 041
  18. HYDROTALCITE [Concomitant]
     Active Substance: HYDROTALCITE
     Route: 048

REACTIONS (4)
  - Hepatic failure [Unknown]
  - Neutrophil count decreased [Recovered/Resolved]
  - SARS-CoV-2 test positive [Not Recovered/Not Resolved]
  - Hyperuricaemia [Unknown]

NARRATIVE: CASE EVENT DATE: 20230406
